FAERS Safety Report 10313205 (Version 4)
Quarter: 2014Q4

REPORT INFORMATION
  Report Type: Report from Study
  Country: JP (occurrence: JP)
  Receive Date: 20140718
  Receipt Date: 20141210
  Transmission Date: 20150528
  Serious: Yes (Other)
  Sender: FDA-Public Use
  Company Number: JP-009507513-1407JPN007602

PATIENT
  Age: 50 Year
  Sex: Male
  Weight: 71 kg

DRUGS (3)
  1. SIMEPREVIR [Suspect]
     Active Substance: SIMEPREVIR
     Indication: CHRONIC HEPATITIS C
     Dosage: 100 MG, QD, 1 IN 1 DAY
     Route: 048
     Dates: start: 20140301, end: 20140522
  2. RIBAVIRIN. [Suspect]
     Active Substance: RIBAVIRIN
     Indication: CHRONIC HEPATITIS C
     Dosage: 800 MG, QD, 1 IN 1 DAY
     Route: 048
     Dates: start: 20140301, end: 20140816
  3. PEGINTRON [Suspect]
     Active Substance: PEGINTERFERON ALFA-2B
     Indication: CHRONIC HEPATITIS C
     Dosage: 1 MICROGRAM PER KILOGRAM, QW, 1 IN 1 WEEK
     Route: 058
     Dates: start: 20140301, end: 20140809

REACTIONS (7)
  - Myalgia [Recovered/Resolved]
  - Cough [Recovering/Resolving]
  - Dysgeusia [Recovering/Resolving]
  - Abdominal pain [Recovered/Resolved]
  - White blood cell count decreased [Recovered/Resolved]
  - Malaise [Recovered/Resolved]
  - Anaemia [Recovered/Resolved]

NARRATIVE: CASE EVENT DATE: 20140301
